FAERS Safety Report 14177919 (Version 1)
Quarter: 2017Q4

REPORT INFORMATION
  Report Type: Report from Study
  Country: US (occurrence: US)
  Receive Date: 20171110
  Receipt Date: 20171110
  Transmission Date: 20180321
  Serious: Yes (Congenital Anomaly, Other)
  Sender: FDA-Public Use
  Company Number: US-JNJFOC-20171105716

PATIENT
  Age: 0 Year
  Sex: Female
  Weight: 1.2 kg

DRUGS (7)
  1. PREZISTA [Suspect]
     Active Substance: DARUNAVIR ETHANOLATE
     Indication: HIV INFECTION
     Route: 048
     Dates: start: 20130618
  2. REYATAZ [Suspect]
     Active Substance: ATAZANAVIR SULFATE
     Indication: HIV INFECTION
     Route: 048
     Dates: start: 20130619, end: 20131008
  3. TRUVADA [Suspect]
     Active Substance: EMTRICITABINE\TENOFOVIR DISOPROXIL FUMARATE
     Indication: HIV INFECTION
     Route: 048
  4. NORVIR [Suspect]
     Active Substance: RITONAVIR
     Indication: HIV INFECTION
     Route: 048
  5. REYATAZ [Suspect]
     Active Substance: ATAZANAVIR SULFATE
     Indication: HIV INFECTION
     Route: 048
     Dates: start: 20131008
  6. RETROVIR [Suspect]
     Active Substance: ZIDOVUDINE
     Indication: HIV INFECTION
     Dosage: 2 MG/KG/HR (TOTAL DAILY DOSE 2) AND 1 MG/KG/HR (TOTAL DAILY DOSE 1)
     Route: 042
     Dates: start: 20131020, end: 20131020
  7. HYDROXYZINE [Suspect]
     Active Substance: HYDROXYZINE HYDROCHLORIDE
     Indication: PRODUCT USED FOR UNKNOWN INDICATION
     Route: 065

REACTIONS (7)
  - Premature baby [Recovered/Resolved]
  - Trisomy 21 [Unknown]
  - Foetal exposure during pregnancy [Recovered/Resolved]
  - High arched palate [Unknown]
  - Nipple disorder [Unknown]
  - Micrognathia [Unknown]
  - Ultrasound scan abnormal [Unknown]

NARRATIVE: CASE EVENT DATE: 20130822
